FAERS Safety Report 11065159 (Version 2)
Quarter: 2015Q2

REPORT INFORMATION
  Report Type: Spontaneous
  Country: US (occurrence: US)
  Receive Date: 20150424
  Receipt Date: 20150525
  Transmission Date: 20150821
  Serious: No
  Sender: FDA-Public Use
  Company Number: US-JNJFOC-20150310217

PATIENT
  Sex: Male
  Weight: 71.22 kg

DRUGS (3)
  1. NUCYNTA [Suspect]
     Active Substance: TAPENTADOL HYDROCHLORIDE
     Indication: BACK INJURY
     Dosage: 4 TIMES A DAY
     Route: 048
     Dates: start: 2011
  2. NUCYNTA ER [Suspect]
     Active Substance: TAPENTADOL HYDROCHLORIDE
     Indication: BACK INJURY
     Dosage: 2 TIMES A DAY
     Route: 048
     Dates: start: 201307, end: 2013
  3. NUCYNTA [Suspect]
     Active Substance: TAPENTADOL HYDROCHLORIDE
     Indication: BACK INJURY
     Dosage: 4 TIMES A DAY
     Route: 048
     Dates: start: 201307, end: 2013

REACTIONS (1)
  - Back pain [Not Recovered/Not Resolved]
